FAERS Safety Report 17550396 (Version 1)
Quarter: 2020Q1

REPORT INFORMATION
  Report Type: Report from Study
  Country: US (occurrence: US)
  Receive Date: 20200317
  Receipt Date: 20200317
  Transmission Date: 20200409
  Serious: Yes (Other)
  Sender: FDA-Public Use
  Company Number: US-ROCHE-2568223

PATIENT
  Sex: Female

DRUGS (1)
  1. OCREVUS [Suspect]
     Active Substance: OCRELIZUMAB
     Indication: MULTIPLE SCLEROSIS
     Dosage: FURTHER DOSES RECEIVED ON 28/DEC/2018, 07/AUG/2019
     Route: 065
     Dates: start: 20181214

REACTIONS (1)
  - Urinary tract infection [Unknown]
